FAERS Safety Report 16396011 (Version 5)
Quarter: 2021Q2

REPORT INFORMATION
  Report Type: Report from Study
  Country: IL (occurrence: IL)
  Receive Date: 20190605
  Receipt Date: 20210510
  Transmission Date: 20210716
  Serious: Yes (Hospitalization, Other)
  Sender: FDA-Public Use
  Company Number: IL-SHIRE-IL201917616

PATIENT

DRUGS (4)
  1. IMIGLUCERASE [Concomitant]
     Active Substance: IMIGLUCERASE
     Indication: PRODUCT USED FOR UNKNOWN INDICATION
     Dosage: 30 INTERNATIONAL UNIT/KILOGRAM, Q2WEEKS
     Route: 065
     Dates: start: 19980107, end: 20060526
  2. IMIGLUCERASE [Concomitant]
     Active Substance: IMIGLUCERASE
     Dosage: 60 INTERNATIONAL UNIT/KILOGRAM, Q2WEEKS
     Route: 065
     Dates: start: 20060528, end: 20100128
  3. VELAGLUCERASE ALFA [Suspect]
     Active Substance: VELAGLUCERASE ALFA
     Indication: GAUCHER^S DISEASE
     Dosage: 15 INTERNATIONAL UNIT/KILOGRAM, 1X/2WKS
     Route: 065
     Dates: start: 20100128, end: 20190603
  4. VELAGLUCERASE ALFA [Suspect]
     Active Substance: VELAGLUCERASE ALFA
     Dosage: 60 INTERNATIONAL UNIT/KILOGRAM, Q2WEEKS
     Route: 065
     Dates: start: 201906

REACTIONS (5)
  - Osteonecrosis [Recovered/Resolved]
  - Hypersplenism [Unknown]
  - Splenomegaly [Unknown]
  - Exposure during pregnancy [Unknown]
  - Short stature [Unknown]

NARRATIVE: CASE EVENT DATE: 201901
